FAERS Safety Report 8345151-4 (Version None)
Quarter: 2012Q2

REPORT INFORMATION
  Report Type: 
  Country: None (occurrence: None)
  Receive Date: 20120508
  Receipt Date: 20120501
  Transmission Date: 20120825
  Serious: Yes (Other)
  Sender: FDA-Public Use
  Company Number: US-ASTRAZENECA-2012SE28291

PATIENT
  Sex: Male

DRUGS (3)
  1. PEPTO [Concomitant]
  2. PLAVIX [Concomitant]
  3. BRILINTA [Suspect]
     Indication: ACUTE CORONARY SYNDROME
     Dosage: TOTAL DAILY DOSE: 180
     Route: 048

REACTIONS (2)
  - THROAT IRRITATION [None]
  - DYSPEPSIA [None]
